FAERS Safety Report 11459474 (Version 3)
Quarter: 2015Q4

REPORT INFORMATION
  Report Type: Report from Study
  Country: US (occurrence: US)
  Receive Date: 20150904
  Receipt Date: 20151105
  Transmission Date: 20160304
  Serious: Yes (Hospitalization, Other)
  Sender: FDA-Public Use
  Company Number: US-PACIRA PHARMACEUTICALS, INC.-2015DEPUS00659

PATIENT
  Sex: Male
  Weight: 112.7 kg

DRUGS (12)
  1. DEPOCYT [Suspect]
     Active Substance: CYTARABINE
     Indication: B-CELL LYMPHOMA
     Dosage: ON DAY 1 AND 15 OF COURSE 1A, 50 MG, UNK, MOST RECENT DOSE: 12AUG2015
     Route: 037
     Dates: start: 20150729
  2. PREDNISONE. [Concomitant]
     Active Substance: PREDNISONE
     Indication: B-CELL LYMPHOMA
     Dosage: 82 MG/135 MG
     Route: 048
     Dates: start: 20150729
  3. ZOVIRAX [Concomitant]
     Active Substance: ACYCLOVIR
     Dosage: 400 MG, BID
     Route: 048
  4. VINCRISTINE [Concomitant]
     Active Substance: VINCRISTINE
     Indication: B-CELL LYMPHOMA
     Dosage: ON DAYS 1, 8, 15 AND 22 OF COURSE 1A, 3.16 MG, UNK. MOST RECENT DOSE: 19AUG2015
     Route: 042
     Dates: start: 20150729
  5. CYCLOPHOSPHAMIDE. [Concomitant]
     Active Substance: CYCLOPHOSPHAMIDE
     Indication: B-CELL LYMPHOMA
     Dosage: DAY 1 AND 15 OF COURSE 1A, 1690 MG, UNK, MOST RECENT DOSE 12AUG2015
     Route: 042
     Dates: start: 20150729
  6. ALBUTEROL. [Concomitant]
     Active Substance: ALBUTEROL
     Dosage: 2 PUFFS BY INHALATION EVERY 12 HOURS
  7. DIFLUCAN [Concomitant]
     Active Substance: FLUCONAZOLE
     Indication: NEUTROPENIA
     Dosage: AS DIRECTED BY MD WHEN NEUTROPENIC
  8. BACTRIM DS [Concomitant]
     Active Substance: SULFAMETHOXAZOLE\TRIMETHOPRIM
     Dosage: ONE EVERY SATURDAY AND SUNDAY
     Route: 048
  9. DAUNORUBICIN [Concomitant]
     Active Substance: DAUNORUBICIN
     Indication: B-CELL LYMPHOMA
     Dosage: DAYS 1-3 OF COURSE 1A, 135 MG, DAILY
     Route: 042
     Dates: start: 20150729
  10. RITUXIMAB [Concomitant]
     Active Substance: RITUXIMAB
     Indication: B-CELL LYMPHOMA
     Dosage: DAY 1 AND 15 OF CYCLE 1A, 800 MG, UNK. MOST RECENT DOSE: 21AUG2015
     Route: 042
     Dates: start: 20150729
  11. PEG-L-ASPARAGINASE [Suspect]
     Active Substance: PEGASPARGASE
     Indication: B-CELL LYMPHOMA
     Dosage: ON DAY 16 OF COURSE 1A, 3750 UNITS, 1X
     Route: 042
     Dates: start: 20150813
  12. LEVAQUIN [Concomitant]
     Active Substance: LEVOFLOXACIN
     Indication: NEUTROPENIA
     Dosage: AS DIRECTED BY MD WHEN NEUTROPENIC

REACTIONS (1)
  - Drug-induced liver injury [Recovering/Resolving]
